FAERS Safety Report 21963089 (Version 1)
Quarter: 2023Q1

REPORT INFORMATION
  Report Type: Spontaneous
  Country: US (occurrence: None)
  Receive Date: 20230205
  Receipt Date: 20230205
  Transmission Date: 20230418
  Serious: Yes (Other)
  Sender: FDA-Public Use
  Company Number: None

PATIENT
  Age: 76 Year
  Sex: Male
  Weight: 59.85 kg

DRUGS (7)
  1. BRIMONIDINE TARTRATE [Suspect]
     Active Substance: BRIMONIDINE TARTRATE
     Indication: Intraocular pressure increased
     Dosage: 1 DROP TWICE A DAY OPHTHALMIC ?
     Route: 047
     Dates: start: 20211201
  2. ATORVASTATIN [Concomitant]
     Active Substance: ATORVASTATIN
  3. OMEPRAZOLE [Concomitant]
     Active Substance: OMEPRAZOLE
  4. FINASTERIDE [Concomitant]
     Active Substance: FINASTERIDE
  5. LISINOPRIL [Concomitant]
     Active Substance: LISINOPRIL
  6. diclofenac sodium 50mg [Concomitant]
  7. BRIMONIDINE [Concomitant]
     Active Substance: BRIMONIDINE TARTRATE

REACTIONS (2)
  - Somnolence [None]
  - Blood pressure fluctuation [None]

NARRATIVE: CASE EVENT DATE: 20230203
